FAERS Safety Report 23292962 (Version 3)
Quarter: 2024Q2

REPORT INFORMATION
  Report Type: Report from Study
  Country: US (occurrence: US)
  Receive Date: 20231213
  Receipt Date: 20240524
  Transmission Date: 20240716
  Serious: Yes (Death, Other)
  Sender: FDA-Public Use
  Company Number: US-PFIZER INC-202300434852

PATIENT
  Age: 61 Year
  Sex: Female

DRUGS (2)
  1. IBRANCE [Suspect]
     Active Substance: PALBOCICLIB
     Dosage: 125 MG, CYCLIC (1 TABLET, D 1 -21 Q 28 DAYS)
     Route: 048
     Dates: start: 202309
  2. IBRANCE [Suspect]
     Active Substance: PALBOCICLIB
     Dosage: 100 MG, CYCLIC (1 TABLET D 1 -21 Q 28 DAYS)
     Route: 048

REACTIONS (4)
  - Death [Fatal]
  - Clostridium difficile infection [Recovering/Resolving]
  - Endodontic procedure [Recovering/Resolving]
  - Pelvic fracture [Recovering/Resolving]
